FAERS Safety Report 8063912-6 (Version None)
Quarter: 2012Q1

REPORT INFORMATION
  Report Type: 
  Country: None (occurrence: None)
  Receive Date: 20120123
  Receipt Date: 20120119
  Transmission Date: 20120608
  Serious: Yes (Life-Threatening)
  Sender: FDA-Public Use
  Company Number: IT-PFIZER INC-2011281752

PATIENT
  Age: 41 Year
  Sex: Male

DRUGS (6)
  1. ENALAPRIL MALEATE [Concomitant]
  2. UNASYN [Suspect]
     Indication: PROPHYLAXIS
     Dosage: 1 DF, 1X/DAY
     Route: 042
     Dates: start: 20111114, end: 20111114
  3. PAPAVERIN [Concomitant]
  4. TRENTAL ^AVENTIS PHARMA^ [Concomitant]
  5. DIAZEPAM [Concomitant]
  6. FUROSEMIDE [Concomitant]
     Dosage: 25 MG

REACTIONS (2)
  - ANAPHYLACTIC REACTION [None]
  - CARDIAC ARREST [None]
